FAERS Safety Report 8478421-X (Version None)
Quarter: 2012Q2

REPORT INFORMATION
  Report Type: 
  Country: None (occurrence: None)
  Receive Date: 20120629
  Receipt Date: 20120622
  Transmission Date: 20120825
  Serious: Yes (Life-Threatening, Other)
  Sender: FDA-Public Use
  Company Number: CN-JNJFOC-20120613349

PATIENT
  Age: 18 Month
  Sex: Female
  Weight: 17 kg

DRUGS (1)
  1. ACETAMINOPHEN [Suspect]
     Indication: PYREXIA
     Dosage: 3 ML
     Route: 048
     Dates: start: 20120621

REACTIONS (2)
  - COMA [None]
  - UPPER RESPIRATORY TRACT INFECTION [None]
